FAERS Safety Report 25947629 (Version 4)
Quarter: 2025Q4

REPORT INFORMATION
  Report Type: Spontaneous
  Country: AU (occurrence: AU)
  Receive Date: 20251022
  Receipt Date: 20251205
  Transmission Date: 20260119
  Serious: Yes (Life-Threatening, Hospitalization, Other)
  Sender: BIOVITRUM
  Company Number: AU-BIOVITRUM-2025-AU-014531

PATIENT
  Age: 32 Year
  Sex: Female

DRUGS (8)
  1. EMAPALUMAB [Suspect]
     Active Substance: EMAPALUMAB
     Indication: Still^s disease
  2. ANAKINRA [Suspect]
     Active Substance: ANAKINRA
     Indication: Still^s disease
     Dosage: QID
  3. ANAKINRA [Suspect]
     Active Substance: ANAKINRA
     Indication: Haemophagocytic lymphohistiocytosis
     Dosage: DAILY, 100 MG/0,67 ML
  4. ANAKINRA [Suspect]
     Active Substance: ANAKINRA
     Indication: Disseminated intravascular coagulation
     Dosage: 400MG/DAY
  5. METHYLPREDNISOLONE [Suspect]
     Active Substance: METHYLPREDNISOLONE
     Indication: Still^s disease
     Route: 042
  6. METHYLPREDNISOLONE [Suspect]
     Active Substance: METHYLPREDNISOLONE
     Dosage: 3 TIMES
     Route: 042
  7. PREDNISOLONE [Suspect]
     Active Substance: PREDNISOLONE
     Indication: Still^s disease
     Dosage: HIGH DOSE
  8. ETOPOSIDE [Suspect]
     Active Substance: ETOPOSIDE
     Indication: Still^s disease

REACTIONS (9)
  - Disseminated intravascular coagulation [Unknown]
  - Pancytopenia [Unknown]
  - Abdominal pain [Unknown]
  - Diarrhoea [Unknown]
  - Pyrexia [Recovered/Resolved]
  - Blood lactate dehydrogenase increased [Recovering/Resolving]
  - Serum ferritin increased [Recovering/Resolving]
  - Off label use [Unknown]
  - Rash [Recovered/Resolved]
